FAERS Safety Report 4754168-8 (Version None)
Quarter: 2005Q3

REPORT INFORMATION
  Report Type: 
  Country: None (occurrence: None)
  Receive Date: 20050826
  Receipt Date: 19990802
  Transmission Date: 20060218
  Serious: Yes (Hospitalization)
  Sender: FDA-Public Use
  Company Number: JP-ABBOTT-05P-087-0306509-00

PATIENT
  Age: 49 Year
  Sex: Male

DRUGS (1)
  1. FERO GRADUMET [Suspect]
     Indication: ANAEMIA
     Route: 048

REACTIONS (12)
  - ACCESSORY NERVE DISORDER [None]
  - GLOSSOPHARYNGEAL NERVE DISORDER [None]
  - HYPOGLOSSAL NERVE DISORDER [None]
  - IVTH NERVE PARALYSIS [None]
  - LARYNGEAL DISORDER [None]
  - NASOPHARYNGEAL DISORDER [None]
  - NECROSIS [None]
  - NERVOUS SYSTEM DISORDER [None]
  - OBSTRUCTION [None]
  - PLAGIOCEPHALY [None]
  - PYRAMIDAL TRACT SYNDROME [None]
  - VAGUS NERVE DISORDER [None]
